FAERS Safety Report 7894452-2 (Version None)
Quarter: 2011Q4

REPORT INFORMATION
  Report Type: 
  Country: None (occurrence: None)
  Receive Date: 20111105
  Receipt Date: 20111028
  Transmission Date: 20120403
  Serious: Yes (Other)
  Sender: FDA-Public Use
  Company Number: BR-ASTRAZENECA-2011SE65679

PATIENT
  Sex: Female

DRUGS (1)
  1. SEROQUEL [Suspect]
     Route: 048

REACTIONS (5)
  - GASTROINTESTINAL ULCER HAEMORRHAGE [None]
  - PRURITUS [None]
  - VOMITING [None]
  - DEHYDRATION [None]
  - FAECES DISCOLOURED [None]
